FAERS Safety Report 9429476 (Version 2)
Quarter: 2013Q3

REPORT INFORMATION
  Report Type: Report from Study
  Country: JP (occurrence: JP)
  Receive Date: 20130730
  Receipt Date: 20130815
  Transmission Date: 20140515
  Serious: Yes (Death)
  Sender: FDA-Public Use
  Company Number: JP-UCBSA-092694

PATIENT
  Age: 62 Year
  Sex: Male
  Weight: 62 kg

DRUGS (2)
  1. E KEPPRA [Suspect]
     Indication: TONIC CONVULSION
     Route: 048
     Dates: start: 20130312, end: 20130619
  2. DEPAKENE-R [Concomitant]
     Indication: TONIC CONVULSION
     Dosage: DAILY DOSE: 200 MG
     Route: 048
     Dates: start: 20130312, end: 20130619

REACTIONS (1)
  - Brain neoplasm [Fatal]
